FAERS Safety Report 4904861-9 (Version None)
Quarter: 2006Q1

REPORT INFORMATION
  Report Type: 
  Country: None (occurrence: None)
  Receive Date: 20060208
  Receipt Date: 20051013
  Transmission Date: 20060701
  Serious: No
  Sender: FDA-Public Use
  Company Number: US-GLAXOSMITHKLINE-A0578133A

PATIENT
  Sex: Female

DRUGS (2)
  1. PAXIL [Suspect]
     Indication: INSOMNIA
     Dosage: 10MG PER DAY
     Route: 048
  2. BLOOD PRESSURE MEDICATION [Concomitant]
     Route: 065

REACTIONS (1)
  - WEIGHT INCREASED [None]
